FAERS Safety Report 8333804-3 (Version None)
Quarter: 2012Q2

REPORT INFORMATION
  Report Type: 
  Country: None (occurrence: None)
  Receive Date: 20120503
  Receipt Date: 20120427
  Transmission Date: 20120825
  Serious: Yes (Life-Threatening, Hospitalization)
  Sender: FDA-Public Use
  Company Number: US-BAYER-2012-006944

PATIENT
  Age: 42 Year
  Sex: Female
  Weight: 56.689 kg

DRUGS (15)
  1. PROAIR HFA [Concomitant]
     Dosage: UNK
     Dates: start: 20030101
  2. SINGULAIR [Concomitant]
     Dosage: UNK
     Dates: start: 20030101
  3. YAZ [Suspect]
     Indication: PREMENSTRUAL SYNDROME
  4. VENTOLIN [Concomitant]
     Dosage: UNK
     Dates: start: 20030101
  5. ALBUTEROL [Concomitant]
     Dosage: UNK
     Dates: start: 20030101
  6. YASMIN [Suspect]
     Indication: PREMENSTRUAL SYNDROME
  7. NASONEX [Concomitant]
     Dosage: UNK
     Dates: start: 20030101
  8. LEXAPRO [Concomitant]
     Indication: ANXIETY
     Dosage: UNK
     Dates: start: 20030101
  9. VIIBRYD [Concomitant]
     Indication: ANXIETY
     Dosage: UNK
     Dates: start: 20030101
  10. SYMBICORT [Concomitant]
     Dosage: UNK
     Dates: start: 20030101
  11. YAZ [Suspect]
     Indication: ACNE
     Dosage: UNK
     Dates: start: 20060101, end: 20110101
  12. VITAMIN C [Concomitant]
     Dosage: UNK
     Dates: start: 20050101
  13. NAPROSYN [Concomitant]
  14. YASMIN [Suspect]
     Indication: ACNE
     Dosage: UNK
     Dates: start: 20060101, end: 20110101
  15. XANAX [Concomitant]
     Indication: ANXIETY
     Dosage: UNK
     Dates: start: 20030101

REACTIONS (5)
  - INJURY [None]
  - ANXIETY [None]
  - ANHEDONIA [None]
  - DEEP VEIN THROMBOSIS [None]
  - PAIN [None]
